FAERS Safety Report 8971587 (Version 2)
Quarter: 2013Q1

REPORT INFORMATION
  Report Type: Spontaneous
  Country: US (occurrence: US)
  Receive Date: 20121217
  Receipt Date: 20130123
  Transmission Date: 20140127
  Serious: Yes (Hospitalization)
  Sender: FDA-Public Use
  Company Number: US-GILEAD-2012-0066289

PATIENT
  Sex: Female

DRUGS (26)
  1. ALLEGRA [Concomitant]
     Dosage: 180 MG, PRN
     Route: 048
     Dates: start: 20120820
  2. ALLOPURINOL [Concomitant]
     Dosage: 300 MG, QD
     Route: 048
  3. AZITHROMYCIN [Concomitant]
     Dosage: 250 MG, 2 TABLETS QD FOR 1 DAY, THEN 1 TABLET QD FOR 4 DAYS
     Route: 048
     Dates: start: 20120820
  4. CALCIUM + D DUETTO [Concomitant]
     Dosage: 600 MG, BID
     Route: 048
  5. CELEXA                             /00582602/ [Concomitant]
     Dosage: 40 MG, 1.5 TABLETS DAILY
     Route: 048
  6. CO Q-10 [Concomitant]
     Dosage: 100 MG, QD
     Route: 048
  7. DICLOFENAC SODIUM [Concomitant]
     Dosage: 75 MG, QD
     Route: 048
  8. DYAZIDE [Concomitant]
     Dosage: 37.5-2.5 MG, QD
     Route: 048
     Dates: start: 20120412
  9. HYDROMET                           /01224801/ [Concomitant]
     Dosage: 1-2 TSP, EVERY 4-6 HOURS AS NEEDED
     Route: 048
     Dates: start: 20120426
  10. IBUPROFEN [Concomitant]
     Dosage: 800 MG, QD
     Route: 048
  11. IMDUR [Concomitant]
     Dosage: 30 MG, QD
     Route: 048
  12. LASIX                              /00032601/ [Concomitant]
     Dosage: 80 MG, QD
     Route: 048
  13. MAGNESIUM OXIDE [Concomitant]
     Dosage: 400 MG, UNK
     Route: 048
  14. NASONEX [Concomitant]
     Dosage: 50 MCG, 2 SPRAYS IN EACH NOSTRIL, PRN
     Route: 045
  15. NAVANE                             /00099101/ [Concomitant]
     Dosage: 5 MG, QHS
     Route: 048
  16. NORVASC [Concomitant]
     Dosage: 10 MG, QD
     Route: 048
     Dates: start: 20120412
  17. OMEPRAZOLE [Concomitant]
     Dosage: 40 MG, QD
     Route: 048
  18. POTASSIUM [Concomitant]
     Dosage: 40 MEQ, QD
     Route: 048
  19. PREDNISONE [Concomitant]
     Dosage: 7 MG, QD
     Route: 048
  20. PRINIVIL [Concomitant]
     Dosage: 10 MG, QD
     Route: 048
     Dates: start: 20101220
  21. PROMETRIUM                         /00110701/ [Concomitant]
     Dosage: 200 MG, QD
     Route: 048
  22. TENORMIN [Concomitant]
     Dosage: 100 MG, QD
     Route: 048
     Dates: start: 20120412
  23. VALIUM                             /00017001/ [Concomitant]
     Dosage: 5 MG, BID
     Route: 048
  24. ZESTRIL [Concomitant]
     Dosage: 10 MG, QD
     Route: 048
     Dates: start: 20120412
  25. ZOCOR [Concomitant]
     Dosage: 80 MG, QD
     Route: 048
  26. LETAIRIS [Suspect]
     Indication: COR PULMONALE CHRONIC
     Dosage: 10 MG, QD
     Route: 048
     Dates: start: 20120315

REACTIONS (1)
  - Exostosis [Unknown]
